FAERS Safety Report 4279662-8 (Version None)
Quarter: 2004Q1

REPORT INFORMATION
  Report Type: 
  Country: None (occurrence: None)
  Receive Date: 20040127
  Receipt Date: 20040127
  Transmission Date: 20041129
  Serious: Yes (Hospitalization, Disabling)
  Sender: FDA-Public Use
  Company Number: None

PATIENT
  Age: 72 Year
  Sex: Male
  Weight: 70.7611 kg

DRUGS (1)
  1. RITUXAN [Suspect]
     Indication: NON-HODGKIN'S LYMPHOMA
     Dosage: 3 OF 6 IV
     Route: 042
     Dates: start: 20031117, end: 20040108

REACTIONS (3)
  - INFUSION SITE REACTION [None]
  - SWELLING [None]
  - WOUND SECRETION [None]
